FAERS Safety Report 13381772 (Version 1)
Quarter: 2017Q1

REPORT INFORMATION
  Report Type: Spontaneous
  Country: US (occurrence: US)
  Receive Date: 20170329
  Receipt Date: 20170329
  Transmission Date: 20170429
  Serious: Yes (Life-Threatening, Hospitalization, Disabling)
  Sender: FDA-Public Use
  Company Number: None

PATIENT
  Age: 49 Year
  Sex: Female
  Weight: 81.72 kg

DRUGS (14)
  1. PALIPERIDONE. [Concomitant]
     Active Substance: PALIPERIDONE
  2. MALITONIN [Concomitant]
  3. LITHIUM CARB [Concomitant]
     Active Substance: LITHIUM CARBONATE
  4. CALCIUM-MAGNESIUM [Concomitant]
     Active Substance: CALCIUM\MAGNESIUM
  5. POWER 10 [Concomitant]
  6. EFFEXOR XR [Concomitant]
     Active Substance: VENLAFAXINE HYDROCHLORIDE
  7. BIOTIN [Concomitant]
     Active Substance: BIOTIN
  8. MULTI-COMPLETE [Concomitant]
  9. ULTIMATE OMEGA [Concomitant]
  10. DIAZEPAM (GENERIC FOR VALIUM) [Suspect]
     Active Substance: DIAZEPAM
     Indication: ANXIETY
     Dosage: 30 PILLS(TABS) 1 TABLET AT BEDTIME MOUTH
     Route: 048
     Dates: start: 20161110, end: 20170119
  11. DIAZEPAM (GENERIC FOR VALIUM) [Suspect]
     Active Substance: DIAZEPAM
     Indication: INSOMNIA
     Dosage: 30 PILLS(TABS) 1 TABLET AT BEDTIME MOUTH
     Route: 048
     Dates: start: 20161110, end: 20170119
  12. FOLIC ACID. [Concomitant]
     Active Substance: FOLIC ACID
  13. DIAZEPAM. [Concomitant]
     Active Substance: DIAZEPAM
  14. OMEGA 3 SLIM [Concomitant]

REACTIONS (5)
  - Unevaluable event [None]
  - Victim of crime [None]
  - Product counterfeit [None]
  - Memory impairment [None]
  - Insomnia [None]

NARRATIVE: CASE EVENT DATE: 20170119
